FAERS Safety Report 6765889-X (Version None)
Quarter: 2010Q2

REPORT INFORMATION
  Report Type: 
  Country: None (occurrence: None)
  Receive Date: 20100611
  Receipt Date: 20100608
  Transmission Date: 20101027
  Serious: Yes (Death)
  Sender: FDA-Public Use
  Company Number: DE-ROCHE-708259

PATIENT
  Sex: Female
  Weight: 69.9 kg

DRUGS (5)
  1. CAPECITABINE [Suspect]
     Indication: RECTAL CANCER
     Dosage: DOSE: 826 MG/M2 PO BID D2-D33 W/O WEEKENDS +OPTIONAL BOOST. MOST RECENT DOSE: 20 APRIL 2010
     Route: 048
     Dates: start: 20100310
  2. OXALIPLATIN [Suspect]
     Indication: RECTAL CANCER
     Dosage: DOSE: 50 MG/M2 I.V ON D1, 8, 15, 22 + 29. DATE OF MOST RECENT ADMINISTRATION: 07 APRIL 2010.
     Route: 042
     Dates: start: 20100310
  3. AMLODIPINE [Concomitant]
     Indication: HYPERTENSION
     Dosage: FREQUENCY: ONCE DAILY.
     Route: 048
     Dates: start: 20061001
  4. RAMIPRIL [Concomitant]
     Indication: HYPERTENSION
     Route: 048
     Dates: start: 20061001
  5. SIMVASTATIN [Concomitant]
     Route: 048
     Dates: start: 20061001

REACTIONS (1)
  - SEPSIS [None]
